FAERS Safety Report 9137321 (Version 3)
Quarter: 2013Q1

REPORT INFORMATION
  Report Type: Spontaneous
  Country: CA (occurrence: CA)
  Receive Date: 20130304
  Receipt Date: 20130321
  Transmission Date: 20140127
  Serious: Yes (Other)
  Sender: FDA-Public Use
  Company Number: CA-BAXTER-2013BAX007107

PATIENT
  Age: 67 Year
  Sex: Female
  Weight: 52 kg

DRUGS (7)
  1. GAMMAGARD LIQUID [Suspect]
     Indication: LYMPHOMA
     Dosage: 1/2
     Route: 042
     Dates: start: 20130211, end: 20130211
  2. SPIRIVA [Concomitant]
     Indication: PRODUCT USED FOR UNKNOWN INDICATION
  3. VENTOLIN [Concomitant]
     Indication: PRODUCT USED FOR UNKNOWN INDICATION
  4. IMOVANE [Concomitant]
     Indication: PRODUCT USED FOR UNKNOWN INDICATION
  5. ADVAIR [Concomitant]
     Indication: PRODUCT USED FOR UNKNOWN INDICATION
  6. NICODERM [Concomitant]
     Indication: PRODUCT USED FOR UNKNOWN INDICATION
  7. TYLENOL [Concomitant]
     Indication: PRODUCT USED FOR UNKNOWN INDICATION

REACTIONS (16)
  - Transfusion-related acute lung injury [Unknown]
  - Body temperature increased [Unknown]
  - Blood pressure increased [Unknown]
  - Pyrexia [Unknown]
  - Chills [Unknown]
  - Dyspnoea [Unknown]
  - Tachycardia [Unknown]
  - Tachypnoea [Unknown]
  - Rales [Unknown]
  - Respiratory disorder [Unknown]
  - Anxiety [Unknown]
  - Hypoxia [Unknown]
  - Procedural nausea [Unknown]
  - Malaise [Unknown]
  - Productive cough [Unknown]
  - X-ray abnormal [Unknown]
